FAERS Safety Report 7893872-X (Version None)
Quarter: 2011Q4

REPORT INFORMATION
  Report Type: 
  Country: None (occurrence: None)
  Receive Date: 20111104
  Receipt Date: 20111021
  Transmission Date: 20120403
  Serious: Yes (Other)
  Sender: FDA-Public Use
  Company Number: PHHY2011JP86466

PATIENT
  Age: 55 Year
  Sex: Male

DRUGS (2)
  1. CYCLOSPORINE [Suspect]
     Indication: PSORIATIC ARTHROPATHY
     Dosage: UNK UKN, UNK
     Route: 048
     Dates: start: 19900101
  2. INFLIXIMAB [Suspect]
     Indication: PSORIATIC ARTHROPATHY
     Dosage: UNK UKN, UNK
     Dates: start: 20080801

REACTIONS (3)
  - CELL MARKER INCREASED [None]
  - ARTHRALGIA [None]
  - INTERSTITIAL LUNG DISEASE [None]
